FAERS Safety Report 5057768-3 (Version None)
Quarter: 2006Q3

REPORT INFORMATION
  Report Type: 
  Country: None (occurrence: None)
  Receive Date: 20060721
  Receipt Date: 20060208
  Transmission Date: 20061208
  Serious: No
  Sender: FDA-Public Use
  Company Number: US-GLAXOSMITHKLINE-A0592870A

PATIENT
  Sex: Male

DRUGS (4)
  1. AVANDIA [Suspect]
     Dosage: 8MG UNKNOWN
     Route: 048
  2. INSULIN [Concomitant]
  3. CALCIUM CHANNEL BLOCKER [Concomitant]
  4. ACE-INHIBITOR [Concomitant]

REACTIONS (2)
  - OEDEMA PERIPHERAL [None]
  - SCROTAL OEDEMA [None]
